FAERS Safety Report 4586945-0 (Version None)
Quarter: 2005Q1

REPORT INFORMATION
  Report Type: 
  Country: None (occurrence: None)
  Receive Date: 20050218
  Receipt Date: 20050110
  Transmission Date: 20050727
  Serious: Yes (Other)
  Sender: FDA-Public Use
  Company Number: AU-BRISTOL-MYERS SQUIBB COMPANY-12819181

PATIENT
  Age: 62 Year
  Sex: Male

DRUGS (5)
  1. PRAVACHOL [Interacting]
  2. GRAPEFRUIT JUICE [Interacting]
  3. PREDNISONE [Suspect]
  4. METHOBLASTIN [Suspect]
  5. EZETROL [Concomitant]

REACTIONS (4)
  - FOOD INTERACTION [None]
  - LOWER RESPIRATORY TRACT INFECTION [None]
  - POLYMYALGIA RHEUMATICA [None]
  - URINARY TRACT INFECTION [None]
